FAERS Safety Report 24852138 (Version 1)
Quarter: 2025Q1

REPORT INFORMATION
  Report Type: Spontaneous
  Country: US (occurrence: US)
  Receive Date: 20250116
  Receipt Date: 20250116
  Transmission Date: 20250408
  Serious: No
  Sender: SANOFI AVENTIS
  Company Number: US-SA-2025SA008413

PATIENT
  Age: 21 Year
  Sex: Female

DRUGS (8)
  1. DUPIXENT [Suspect]
     Active Substance: DUPILUMAB
     Indication: Dermatitis atopic
     Dosage: 300 MG, QOW
     Route: 058
  2. VITAMIN D3 [Concomitant]
     Active Substance: CHOLECALCIFEROL
     Indication: Vitamin D decreased
     Dosage: 50,000IU FOR 12 WEEKS
  3. VITAMIN D3 [Concomitant]
     Active Substance: CHOLECALCIFEROL
     Dosage: 125MCG (5,000IU) ONCE A DAY
  4. ZINC [Concomitant]
     Active Substance: ZINC
  5. TYLENOL [Concomitant]
     Active Substance: ACETAMINOPHEN
     Indication: Migraine
  6. TYLENOL [Concomitant]
     Active Substance: ACETAMINOPHEN
     Indication: Tension headache
  7. ALEVE [Concomitant]
     Active Substance: NAPROXEN SODIUM
     Indication: Migraine
  8. ALEVE [Concomitant]
     Active Substance: NAPROXEN SODIUM
     Indication: Tension headache

REACTIONS (4)
  - Skin burning sensation [Unknown]
  - Injection site pain [Unknown]
  - Dermatitis atopic [Unknown]
  - Therapeutic response shortened [Unknown]

NARRATIVE: CASE EVENT DATE: 20250101
